FAERS Safety Report 8587119-9 (Version None)
Quarter: 2012Q3

REPORT INFORMATION
  Report Type: 
  Country: None (occurrence: None)
  Receive Date: 20120810
  Receipt Date: 20120808
  Transmission Date: 20120928
  Serious: No
  Sender: FDA-Public Use
  Company Number: US-TEVA-352730USA

PATIENT
  Sex: Female
  Weight: 59.02 kg

DRUGS (6)
  1. NUVIGIL [Suspect]
     Dosage: 75 MILLIGRAM DAILY;
     Route: 048
  2. NUVIGIL [Suspect]
     Dosage: 125 MILLIGRAM DAILY;
     Route: 048
  3. XYREM [Concomitant]
     Indication: SLEEP DISORDER
     Dosage: 5 GRAM DAILY;
     Route: 048
  4. NUVIGIL [Suspect]
     Dosage: 200 MILLIGRAM DAILY;
     Route: 048
  5. NUVIGIL [Suspect]
     Dosage: 250 MILLIGRAM DAILY;
     Route: 048
     Dates: start: 20120720
  6. NUVIGIL [Suspect]
     Indication: NARCOLEPSY
     Dosage: 150 MILLIGRAM DAILY;
     Route: 048

REACTIONS (7)
  - DISTURBANCE IN ATTENTION [None]
  - RESTLESSNESS [None]
  - HEART RATE INCREASED [None]
  - LETHARGY [None]
  - HYPOTONIA [None]
  - DISTRACTIBILITY [None]
  - DYSPNOEA [None]
